FAERS Safety Report 6565502-0 (Version None)
Quarter: 2010Q1

REPORT INFORMATION
  Report Type: 
  Country: None (occurrence: None)
  Receive Date: 20100201
  Receipt Date: 20100120
  Transmission Date: 20100710
  Serious: Yes (Death)
  Sender: FDA-Public Use
  Company Number: US-ELI_LILLY_AND_COMPANY-US201001004236

PATIENT
  Sex: Female

DRUGS (2)
  1. EFFIENT [Suspect]
     Dates: start: 20100101
  2. PLAVIX [Concomitant]

REACTIONS (1)
  - ISCHAEMIC CARDIOMYOPATHY [None]
